FAERS Safety Report 6772484-5 (Version None)
Quarter: 2010Q2

REPORT INFORMATION
  Report Type: 
  Country: None (occurrence: None)
  Receive Date: 20100616
  Receipt Date: 20100326
  Transmission Date: 20101027
  Serious: No
  Sender: FDA-Public Use
  Company Number: US-ASTRAZENECA-2010SE06840

PATIENT
  Age: 76 Year
  Sex: Female
  Weight: 108.9 kg

DRUGS (7)
  1. PULMICORT FLEXHALER [Suspect]
     Indication: ASTHMA
     Route: 055
     Dates: start: 20000101
  2. SEREVENT [Concomitant]
     Indication: ASTHMA
  3. ATACAND [Concomitant]
     Indication: HYPERTENSION
  4. GLUCOPHAGE [Concomitant]
     Indication: DIABETES MELLITUS
  5. ASPIRIN [Concomitant]
  6. NORVASC [Concomitant]
  7. M.V.I. [Concomitant]

REACTIONS (3)
  - CHEST DISCOMFORT [None]
  - DYSPNOEA [None]
  - NASOPHARYNGITIS [None]
